FAERS Safety Report 5739276-7 (Version None)
Quarter: 2008Q2

REPORT INFORMATION
  Report Type: 
  Country: None (occurrence: None)
  Receive Date: 20080515
  Receipt Date: 20080505
  Transmission Date: 20081010
  Serious: Yes (Hospitalization)
  Sender: FDA-Public Use
  Company Number: US-AVENTIS-200716274US

PATIENT
  Sex: Female
  Weight: 81 kg

DRUGS (14)
  1. KETEK [Suspect]
     Indication: BRONCHITIS
     Dosage: DOSE: 400 [QUANTITY #10]
     Route: 048
     Dates: start: 20060118, end: 20060127
  2. KETEK [Suspect]
     Dosage: DOSE: 400 [QUANTITY #10]
     Route: 048
     Dates: start: 20060118, end: 20060127
  3. MEDROL [Concomitant]
     Dosage: DOSE: 4 (QUANTITIY #21]
     Dates: start: 20060118
  4. ALBUTEROL [Concomitant]
     Dosage: DOSE: 2 PUFFS
     Dates: start: 20060111
  5. XOPENEX [Concomitant]
     Dates: start: 20060111
  6. ROCEPHIN                           /00672201/ [Concomitant]
     Route: 030
     Dates: start: 20060111
  7. CELESTONE                          /00008501/ [Concomitant]
     Dates: start: 20060111
  8. TYLENOL [Concomitant]
  9. XANAX [Concomitant]
  10. PROMETHAZINE [Concomitant]
     Dosage: DOSE: 25 [QUANTITY #30]
     Dates: start: 20060119
  11. CYCLOBENZAPRINE HCL [Concomitant]
  12. TIZANIDINE HCL [Concomitant]
  13. ENDOCET [Concomitant]
     Dosage: DOSE: 10/650
  14. NYQUIL [Concomitant]
     Dosage: DOSE: UNK

REACTIONS (18)
  - ABDOMINAL PAIN UPPER [None]
  - ABDOMINAL TENDERNESS [None]
  - ASTHENIA [None]
  - CHROMATURIA [None]
  - FATIGUE [None]
  - HEPATIC ENZYME INCREASED [None]
  - HEPATITIS [None]
  - HYPERHIDROSIS [None]
  - ILL-DEFINED DISORDER [None]
  - JAUNDICE [None]
  - LETHARGY [None]
  - LYMPHADENOPATHY [None]
  - NAUSEA [None]
  - PRURITUS [None]
  - PYREXIA [None]
  - RASH [None]
  - UPPER RESPIRATORY TRACT INFECTION [None]
  - VOMITING [None]
